FAERS Safety Report 4647459-2 (Version None)
Quarter: 2005Q2

REPORT INFORMATION
  Report Type: 
  Country: None (occurrence: None)
  Receive Date: 20050428
  Receipt Date: 20050418
  Transmission Date: 20051028
  Serious: Yes (Death)
  Sender: FDA-Public Use
  Company Number: US-JNJFOC-20050404589

PATIENT
  Age: 84 Year
  Sex: Female

DRUGS (1)
  1. REMINYL [Suspect]
     Route: 049
     Dates: start: 20011201, end: 20050327

REACTIONS (3)
  - CARDIAC FAILURE CONGESTIVE [None]
  - DEMENTIA ALZHEIMER'S TYPE [None]
  - PNEUMONIA [None]
